FAERS Safety Report 4352662-5 (Version None)
Quarter: 2004Q2

REPORT INFORMATION
  Report Type: 
  Country: None (occurrence: None)
  Receive Date: 20040504
  Receipt Date: 20040422
  Transmission Date: 20050107
  Serious: Yes (Other)
  Sender: FDA-Public Use
  Company Number: JP-BRISTOL-MYERS SQUIBB COMPANY-12568275

PATIENT
  Age: 75 Year
  Sex: Female

DRUGS (2)
  1. TAXOL [Suspect]
     Indication: OVARIAN CANCER METASTATIC
     Dosage: INITIAL DOSE: AUG-2003
     Route: 042
     Dates: start: 20040309, end: 20040309
  2. PARAPLATIN [Suspect]
     Indication: OVARIAN CANCER METASTATIC
     Dosage: INITIAL DOSE: AUG-2003
     Route: 042
     Dates: start: 20040309, end: 20040309

REACTIONS (5)
  - CEREBRAL INFARCTION [None]
  - DEEP VEIN THROMBOSIS [None]
  - FIBRIN DEGRADATION PRODUCTS INCREASED [None]
  - FIBRIN INCREASED [None]
  - PLATELET COUNT DECREASED [None]
